FAERS Safety Report 10308135 (Version 2)
Quarter: 2014Q3

REPORT INFORMATION
  Report Type: Spontaneous
  Country: FR (occurrence: FR)
  Receive Date: 20140716
  Receipt Date: 20140721
  Transmission Date: 20150326
  Serious: Yes (Other)
  Sender: FDA-Public Use
  Company Number: FR-JNJFOC-20140706670

PATIENT
  Age: 22 Year
  Sex: Male

DRUGS (3)
  1. SEROPLEX [Interacting]
     Active Substance: ESCITALOPRAM OXALATE
     Indication: ALCOHOL DETOXIFICATION
     Route: 048
  2. BACLOFEN. [Concomitant]
     Active Substance: BACLOFEN
     Indication: ALCOHOL DETOXIFICATION
     Route: 065
  3. IXPRIM [Suspect]
     Active Substance: ACETAMINOPHEN\TRAMADOL HYDROCHLORIDE
     Indication: PRODUCT USED FOR UNKNOWN INDICATION
     Route: 048
     Dates: start: 20140502, end: 20140502

REACTIONS (3)
  - Convulsion [Recovered/Resolved]
  - Drug interaction [Recovered/Resolved]
  - Intentional overdose [Recovered/Resolved]

NARRATIVE: CASE EVENT DATE: 20140502
